FAERS Safety Report 6278257-4 (Version None)
Quarter: 2009Q3

REPORT INFORMATION
  Report Type: 
  Country: None (occurrence: None)
  Receive Date: 20090722
  Receipt Date: 20090713
  Transmission Date: 20100115
  Serious: Yes (Other)
  Sender: FDA-Public Use
  Company Number: AU-ASTRAZENECA-2009SE04101

PATIENT
  Age: 0 Week
  Sex: Female

DRUGS (1)
  1. ATACAND [Suspect]
     Route: 064
     Dates: start: 20090101, end: 20090601

REACTIONS (1)
  - RENAL FAILURE [None]
